FAERS Safety Report 8205472-2 (Version None)
Quarter: 2012Q1

REPORT INFORMATION
  Report Type: 
  Country: None (occurrence: None)
  Receive Date: 20120313
  Receipt Date: 20120305
  Transmission Date: 20120608
  Serious: Yes (Other)
  Sender: FDA-Public Use
  Company Number: SA-JNJFOC-20120208946

PATIENT
  Age: 17 Year
  Sex: Male

DRUGS (1)
  1. INFLIXIMAB, RECOMBINANT [Suspect]
     Indication: VITILIGO
     Dosage: AT 0,2 AND 6 WEEKS AND THEN ONCE EVERY 6 WEEKS
     Route: 042

REACTIONS (2)
  - DERMATITIS PSORIASIFORM [None]
  - VITILIGO [None]
